FAERS Safety Report 6170349-3 (Version None)
Quarter: 2009Q2

REPORT INFORMATION
  Report Type: 
  Country: None (occurrence: None)
  Receive Date: 20090428
  Receipt Date: 20090421
  Transmission Date: 20091009
  Serious: Yes (Disabling)
  Sender: FDA-Public Use
  Company Number: US-MERCK-0904USA03562

PATIENT
  Age: 15 Year
  Sex: Female

DRUGS (2)
  1. ISENTRESS [Suspect]
     Indication: HIV INFECTION
     Route: 048
     Dates: start: 20090409
  2. TRUVADA [Concomitant]
     Route: 065

REACTIONS (3)
  - DIZZINESS [None]
  - EAR DISCOMFORT [None]
  - HEADACHE [None]
